FAERS Safety Report 10246853 (Version 1)
Quarter: 2014Q2

REPORT INFORMATION
  Report Type: Spontaneous
  Country: AR (occurrence: AR)
  Receive Date: 20140619
  Receipt Date: 20140619
  Transmission Date: 20141212
  Serious: Yes (Other)
  Sender: FDA-Public Use
  Company Number: AR-MYLANLABS-2014S1014239

PATIENT
  Age: 43 Year
  Sex: Male

DRUGS (2)
  1. MIGRA ERGOFALEA [Suspect]
     Indication: HEADACHE
     Dosage: CAFFEINE/ERGOTAMINE/IBUPROFEN: 100/1/400MG
     Route: 065
  2. BISOPROLOL [Interacting]
     Indication: HYPERTENSION
     Dosage: 5MG/DAY
     Route: 065

REACTIONS (8)
  - Extremity necrosis [Recovering/Resolving]
  - Drug interaction [Unknown]
  - Injury [None]
  - Cyanosis [None]
  - Skin ulcer [None]
  - Haemorrhage [None]
  - Arterial occlusive disease [None]
  - Infection [None]
